FAERS Safety Report 6203334-3 (Version None)
Quarter: 2009Q2

REPORT INFORMATION
  Report Type: 
  Country: None (occurrence: None)
  Receive Date: 20090527
  Receipt Date: 20090514
  Transmission Date: 20091009
  Serious: Yes (Life-Threatening, Hospitalization)
  Sender: FDA-Public Use
  Company Number: ES-CELGENEUS-144-20484-09051200

PATIENT
  Sex: Male

DRUGS (5)
  1. INNOHEP [Suspect]
     Route: 058
     Dates: start: 20090210, end: 20090225
  2. ACETYLSALICYLIC ACID [Concomitant]
     Indication: ATRIAL FIBRILLATION
     Route: 048
  3. OMEPRAZOLE [Concomitant]
     Route: 048
  4. BRONCHODILATORS [Concomitant]
     Indication: DRUG USE FOR UNKNOWN INDICATION
     Route: 055
  5. ANTICHOLINERGICS [Concomitant]
     Route: 055

REACTIONS (1)
  - ABDOMINAL WALL HAEMATOMA [None]
